FAERS Safety Report 5388228-8 (Version None)
Quarter: 2007Q3

REPORT INFORMATION
  Report Type: 
  Country: None (occurrence: None)
  Receive Date: 20070716
  Receipt Date: 20070201
  Transmission Date: 20080115
  Serious: No
  Sender: FDA-Public Use
  Company Number: A0637728A

PATIENT
  Age: 50 Year
  Sex: Female

DRUGS (14)
  1. NICORETTE [Suspect]
     Dates: start: 20070130
  2. PERPHENAZINE [Concomitant]
  3. IMIPRAMINE [Concomitant]
  4. BENZTROPINE [Concomitant]
  5. HYDROXYZINE [Concomitant]
  6. LASIX [Concomitant]
  7. KLOR-CON [Concomitant]
  8. ETODOLAC [Concomitant]
  9. VYTORIN [Concomitant]
  10. LUNESTA [Concomitant]
  11. HYDROCODONE BITARTRATE [Concomitant]
  12. SUCRALFATE [Concomitant]
  13. ZELNORM [Concomitant]
  14. UNSPECIFIED MEDICATION [Concomitant]

REACTIONS (7)
  - COLD SWEAT [None]
  - DIZZINESS [None]
  - MALAISE [None]
  - MUSCLE SPASMS [None]
  - NAUSEA [None]
  - NERVOUSNESS [None]
  - TREMOR [None]
